FAERS Safety Report 9730170 (Version 2)
Quarter: 2014Q1

REPORT INFORMATION
  Report Type: Spontaneous
  Country: IT (occurrence: IT)
  Receive Date: 20131204
  Receipt Date: 20140210
  Transmission Date: 20141002
  Serious: Yes (Life-Threatening, Hospitalization)
  Sender: FDA-Public Use
  Company Number: IT-TEVA-446507ISR

PATIENT
  Age: 43 Year
  Sex: Male
  Weight: 90 kg

DRUGS (5)
  1. FLUOROURACILE TEVA [Suspect]
     Indication: RECTAL CANCER
     Dosage: 3409 MILLIGRAM DAILY;
     Route: 042
     Dates: start: 20130326, end: 20130409
  2. ERBITUX [Suspect]
     Indication: RECTAL CANCER STAGE IV
     Dosage: 802 MILLIGRAM DAILY;
     Route: 042
     Dates: start: 20130410, end: 20130410
  3. CAMPTO [Suspect]
     Indication: RECTAL CANCER
     Dosage: 120.3 MILLIGRAM DAILY; CONCENTRATE FOR SOLUTION FOR INFUSION
     Route: 042
     Dates: start: 20130326, end: 20130409
  4. ZOFRAN 8MG/4ML [Concomitant]
     Indication: PROPHYLAXIS OF NAUSEA AND VOMITING
     Dosage: 8 MILLIGRAM DAILY;
     Route: 042
     Dates: start: 20130326, end: 20130409
  5. DESAMETASONE FOSFATO HOSPIRA 8MG/2ML [Concomitant]
     Indication: PROPHYLAXIS OF NAUSEA AND VOMITING
     Dosage: 8 MILLIGRAM DAILY;
     Route: 042
     Dates: start: 20130326, end: 20130409

REACTIONS (5)
  - Febrile neutropenia [Recovered/Resolved with Sequelae]
  - Abdominal sepsis [Recovered/Resolved with Sequelae]
  - Subileus [Unknown]
  - Post procedural haemorrhage [Unknown]
  - Device deployment issue [Unknown]
